FAERS Safety Report 12724075 (Version 1)
Quarter: 2016Q3

REPORT INFORMATION
  Report Type: Spontaneous
  Country: US (occurrence: US)
  Receive Date: 20160904
  Receipt Date: 20160904
  Transmission Date: 20161109
  Serious: Yes (Other)
  Sender: FDA-Public Use
  Company Number: None

PATIENT
  Age: 64 Year
  Sex: Female
  Weight: 104.85 kg

DRUGS (7)
  1. PROBIOTICS [Concomitant]
     Active Substance: PROBIOTICS NOS
  2. CEPHALEXIN AUROBINDO [Suspect]
     Active Substance: CEPHALEXIN
     Indication: CYSTITIS
     Route: 048
     Dates: start: 20160830, end: 20160904
  3. FLAXSEED [Concomitant]
     Active Substance: FLAX SEED
  4. GARLIC TABLETS [Concomitant]
     Active Substance: GARLIC
  5. VITAMIN B12 [Concomitant]
     Active Substance: CYANOCOBALAMIN
  6. VITAMIN D3 [Concomitant]
     Active Substance: CHOLECALCIFEROL
  7. K2 [Concomitant]
     Active Substance: JWH-018

REACTIONS (4)
  - Rash [None]
  - Dysphagia [None]
  - Throat tightness [None]
  - Pruritus generalised [None]

NARRATIVE: CASE EVENT DATE: 20160904
